FAERS Safety Report 18765164 (Version 1)
Quarter: 2021Q1

REPORT INFORMATION
  Report Type: Report from Study
  Country: BR (occurrence: BR)
  Receive Date: 20210121
  Receipt Date: 20210121
  Transmission Date: 20210419
  Serious: Yes (Other)
  Sender: FDA-Public Use
  Company Number: BR-UCBSA-2021002143

PATIENT
  Age: 46 Year
  Sex: Female
  Weight: 70 kg

DRUGS (3)
  1. CODEX [CODEINE PHOSPHATE;PARACETAMOL] [Concomitant]
     Indication: COVID-19
  2. CERTOLIZUMAB PEGOL [Suspect]
     Active Substance: CERTOLIZUMAB PEGOL
     Indication: ANKYLOSING SPONDYLITIS
     Dosage: 200 MILLIGRAM, EV 15 DAYS
     Route: 058
     Dates: start: 201807, end: 2020
  3. CODEX [CODEINE PHOSPHATE;PARACETAMOL] [Concomitant]
     Indication: INTERVERTEBRAL DISC PROTRUSION
     Route: 048

REACTIONS (2)
  - Quarantine [Unknown]
  - COVID-19 [Recovering/Resolving]

NARRATIVE: CASE EVENT DATE: 202012
